FAERS Safety Report 7067353-X (Version None)
Quarter: 2010Q4

REPORT INFORMATION
  Report Type: 
  Country: None (occurrence: None)
  Receive Date: 20101022
  Receipt Date: 20101022
  Transmission Date: 20110411
  Serious: Yes (Other)
  Sender: FDA-Public Use
  Company Number: None

PATIENT
  Age: 37 Year
  Sex: Male
  Weight: 68.0396 kg

DRUGS (1)
  1. CIPROFLOXACIN [Suspect]
     Indication: INFECTION PROPHYLAXIS
     Dosage: 500 MG 2 TIMES PER DAY PO
     Route: 048
     Dates: start: 20100205, end: 20100210

REACTIONS (3)
  - ARTHRALGIA [None]
  - NEURALGIA [None]
  - TENDON PAIN [None]
